FAERS Safety Report 9495951 (Version 1)
Quarter: 2013Q3

REPORT INFORMATION
  Report Type: Spontaneous
  Country: NO (occurrence: NO)
  Receive Date: 20130904
  Receipt Date: 20130904
  Transmission Date: 20140515
  Serious: Yes (Disabling)
  Sender: FDA-Public Use
  Company Number: NO-009507513-1309NOR000260

PATIENT
  Age: 57 Year
  Sex: Female

DRUGS (7)
  1. ALENDRONATE SODIUM [Suspect]
     Indication: OSTEOPOROSIS
     Dosage: 70 MG, QW
     Route: 048
     Dates: start: 20080805, end: 20130507
  2. VENLAFAXINE HYDROCHLORIDE [Concomitant]
     Indication: BIPOLAR DISORDER
     Dosage: 225 MG, QD
     Route: 048
     Dates: start: 20091118
  3. LEVAXIN [Concomitant]
     Indication: HYPOTHYROIDISM
     Dosage: 150 MICROGRAM, QD
     Route: 048
     Dates: start: 2000
  4. LIOTHYRONINE SODIUM [Concomitant]
     Indication: HYPOTHYROIDISM
     Dosage: 20 MICROGRAM, QD
     Route: 048
     Dates: start: 2000
  5. ORFIRIL [Concomitant]
     Indication: BIPOLAR DISORDER
     Dosage: 2100 MG, QD
     Route: 048
     Dates: start: 2003
  6. LAMICTAL [Concomitant]
     Indication: BIPOLAR DISORDER
     Dosage: 125 MG, QD
     Route: 048
     Dates: start: 2003
  7. CALCIGRAN FORTE [Concomitant]
     Indication: OSTEOPOROSIS
     Dosage: 500 MG, QD
     Route: 048
     Dates: start: 20080805

REACTIONS (1)
  - Hypersomnia [Not Recovered/Not Resolved]
